FAERS Safety Report 9349874 (Version 2)
Quarter: 2013Q3

REPORT INFORMATION
  Report Type: Spontaneous
  Country: US (occurrence: None)
  Receive Date: 20130611
  Receipt Date: 20130716
  Transmission Date: 20140515
  Serious: Yes (Death)
  Sender: FDA-Public Use
  Company Number: 2013-US-0218

PATIENT
  Age: 76 Year
  Sex: Female

DRUGS (1)
  1. SANCUSO [Suspect]
     Indication: PROPHYLAXIS OF NAUSEA AND VOMITING
     Route: 062

REACTIONS (1)
  - Death [None]
